FAERS Safety Report 16865365 (Version 2)
Quarter: 2020Q1

REPORT INFORMATION
  Report Type: Spontaneous
  Country: JP (occurrence: JP)
  Receive Date: 20190930
  Receipt Date: 20200227
  Transmission Date: 20200409
  Serious: Yes (Hospitalization, Disabling)
  Sender: FDA-Public Use
  Company Number: JP-REGENERON PHARMACEUTICALS, INC.-2019-54704

PATIENT

DRUGS (37)
  1. EYLEA [Suspect]
     Active Substance: AFLIBERCEPT
     Dosage: 0.05 ML, ONCE (RIGHT EYE)
     Route: 031
     Dates: start: 20140611, end: 20140611
  2. EYLEA [Suspect]
     Active Substance: AFLIBERCEPT
     Dosage: 0.05 ML, ONCE (LEFT EYE)
     Route: 031
     Dates: start: 20141210, end: 20141210
  3. EYLEA [Suspect]
     Active Substance: AFLIBERCEPT
     Dosage: 0.05 ML, ONCE (LEFT EYE)
     Route: 031
     Dates: start: 20150819, end: 20150819
  4. EYLEA [Suspect]
     Active Substance: AFLIBERCEPT
     Dosage: 0.05 ML, ONCE (RIGHT EYE)
     Route: 031
     Dates: start: 20151021, end: 20151021
  5. EYLEA [Suspect]
     Active Substance: AFLIBERCEPT
     Dosage: 0.05 ML, ONCE (RIGHT EYE)
     Route: 031
     Dates: start: 20160831, end: 20160831
  6. EYLEA [Suspect]
     Active Substance: AFLIBERCEPT
     Dosage: 0.05 ML, ONCE (LEFT EYE)
     Route: 031
     Dates: start: 20130410, end: 20130410
  7. EYLEA [Suspect]
     Active Substance: AFLIBERCEPT
     Dosage: 0.05 ML, ONCE (LEFT EYE)
     Route: 031
     Dates: start: 20131216, end: 20131216
  8. EYLEA [Suspect]
     Active Substance: AFLIBERCEPT
     Dosage: 0.05 ML, ONCE (RIGHT EYE)
     Route: 031
     Dates: start: 20141029, end: 20141029
  9. EYLEA [Suspect]
     Active Substance: AFLIBERCEPT
     Dosage: 0.05 ML, ONCE (LEFT EYE)
     Route: 031
     Dates: start: 20150610, end: 20150610
  10. EYLEA [Suspect]
     Active Substance: AFLIBERCEPT
     Dosage: 0.05 ML, ONCE (LEFT EYE)
     Route: 031
     Dates: start: 20131002, end: 20131002
  11. EYLEA [Suspect]
     Active Substance: AFLIBERCEPT
     Dosage: 0.05 ML, ONCE (LEFT EYE)
     Route: 031
     Dates: start: 20140303, end: 20140303
  12. EYLEA [Suspect]
     Active Substance: AFLIBERCEPT
     Dosage: 0.05 ML, ONCE (LEFT EYE)
     Route: 031
     Dates: start: 20140723, end: 20140723
  13. EYLEA [Suspect]
     Active Substance: AFLIBERCEPT
     Dosage: 0.05 ML, ONCE (RIGHT EYE)
     Route: 031
     Dates: start: 20150107, end: 20150107
  14. EYLEA [Suspect]
     Active Substance: AFLIBERCEPT
     Dosage: 0.05 ML, ONCE (RIGHT EYE)
     Route: 031
     Dates: start: 20150325, end: 20150325
  15. EYLEA [Suspect]
     Active Substance: AFLIBERCEPT
     Indication: AGE-RELATED MACULAR DEGENERATION
     Dosage: 0.05 ML, ONCE (LEFT EYE)
     Route: 031
     Dates: start: 20130116, end: 20130116
  16. EYLEA [Suspect]
     Active Substance: AFLIBERCEPT
     Dosage: 0.05 ML, ONCE (LEFT EYE)
     Route: 031
     Dates: start: 20130619, end: 20130619
  17. EYLEA [Suspect]
     Active Substance: AFLIBERCEPT
     Dosage: 0.05 ML, ONCE (LEFT EYE)
     Route: 031
     Dates: start: 20130731, end: 20130731
  18. EYLEA [Suspect]
     Active Substance: AFLIBERCEPT
     Dosage: 0.05 ML, ONCE (RIGHT EYE)
     Route: 031
     Dates: start: 20131113, end: 20131113
  19. EYLEA [Suspect]
     Active Substance: AFLIBERCEPT
     Dosage: 0.05 ML, ONCE (LEFT EYE)
     Route: 031
     Dates: start: 20140507, end: 20140507
  20. EYLEA [Suspect]
     Active Substance: AFLIBERCEPT
     Dosage: 0.05 ML, ONCE (RIGHT EYE)
     Route: 031
     Dates: start: 20150626, end: 20150626
  21. EYLEA [Suspect]
     Active Substance: AFLIBERCEPT
     Dosage: 0.05 ML, ONCE (RIGHT EYE)
     Route: 031
     Dates: start: 20130213, end: 20130213
  22. EYLEA [Suspect]
     Active Substance: AFLIBERCEPT
     Dosage: 0.05 ML, ONCE (RIGHT EYE)
     Route: 031
     Dates: start: 20140129, end: 20140129
  23. EYLEA [Suspect]
     Active Substance: AFLIBERCEPT
     Dosage: 0.05 ML, ONCE (RIGHT EYE)
     Route: 031
     Dates: start: 20140821, end: 20140821
  24. EYLEA [Suspect]
     Active Substance: AFLIBERCEPT
     Dosage: 0.05 ML, ONCE (LEFT EYE)
     Route: 031
     Dates: start: 20141001, end: 20141001
  25. EYLEA [Suspect]
     Active Substance: AFLIBERCEPT
     Dosage: 0.05 ML, ONCE (RIGHT EYE)
     Route: 031
     Dates: start: 20150624, end: 20150624
  26. EYLEA [Suspect]
     Active Substance: AFLIBERCEPT
     Dosage: 0.05 ML, ONCE (LEFT EYE)
     Route: 031
     Dates: start: 20151028, end: 20151028
  27. EYLEA [Suspect]
     Active Substance: AFLIBERCEPT
     Dosage: 0.05 ML, ONCE (RIGHT EYE)
     Route: 031
     Dates: start: 20151209, end: 20151209
  28. EYLEA [Suspect]
     Active Substance: AFLIBERCEPT
     Dosage: 0.05 ML, ONCE (RIGHT EYE)
     Route: 031
     Dates: start: 20160413, end: 20160413
  29. EYLEA [Suspect]
     Active Substance: AFLIBERCEPT
     Dosage: 0.05 ML, ONCE (RIGHT EYE)
     Route: 031
     Dates: start: 20160622, end: 20160622
  30. EYLEA [Suspect]
     Active Substance: AFLIBERCEPT
     Dosage: 0.05 ML, ONCE (LEFT EYE)
     Route: 031
     Dates: start: 20130313, end: 20130313
  31. EYLEA [Suspect]
     Active Substance: AFLIBERCEPT
     Dosage: 0.05 ML, ONCE (RIGHT EYE)
     Route: 031
     Dates: start: 20130508, end: 20130508
  32. EYLEA [Suspect]
     Active Substance: AFLIBERCEPT
     Dosage: 0.05 ML, ONCE (LEFT EYE)
     Route: 031
     Dates: start: 20151216, end: 20151216
  33. EYLEA [Suspect]
     Active Substance: AFLIBERCEPT
     Dosage: 0.05 ML, ONCE (RIGHT EYE)
     Route: 031
     Dates: start: 20160203, end: 20160203
  34. EYLEA [Suspect]
     Active Substance: AFLIBERCEPT
     Dosage: 0.05 ML, ONCE (LEFT EYE)
     Route: 031
     Dates: start: 20160210, end: 20160210
  35. EYLEA [Suspect]
     Active Substance: AFLIBERCEPT
     Dosage: 0.05 ML, ONCE (RIGHT EYE)
     Route: 031
     Dates: start: 20130828, end: 20130828
  36. EYLEA [Suspect]
     Active Substance: AFLIBERCEPT
     Dosage: 0.05 ML, ONCE (RIGHT EYE)
     Route: 031
     Dates: start: 20140409, end: 20140409
  37. EYLEA [Suspect]
     Active Substance: AFLIBERCEPT
     Dosage: 0.05 ML, ONCE (LEFT EYE)
     Route: 031
     Dates: start: 20150304, end: 20150304

REACTIONS (2)
  - Vitreous haemorrhage [Recovering/Resolving]
  - Retinal haemorrhage [Not Recovered/Not Resolved]

NARRATIVE: CASE EVENT DATE: 20160408
